FAERS Safety Report 7646102-8 (Version None)
Quarter: 2011Q3

REPORT INFORMATION
  Report Type: 
  Country: None (occurrence: None)
  Receive Date: 20110801
  Receipt Date: 20110719
  Transmission Date: 20111222
  Serious: No
  Sender: FDA-Public Use
  Company Number: US-BIOGENIDEC-2010BI028736

PATIENT
  Sex: Male

DRUGS (1)
  1. TYSABRI [Suspect]
     Indication: MULTIPLE SCLEROSIS
     Route: 042
     Dates: start: 20100708

REACTIONS (8)
  - STRABISMUS [None]
  - ERYTHEMA [None]
  - LACRIMATION INCREASED [None]
  - ASTHENIA [None]
  - URTICARIA [None]
  - MUSCULOSKELETAL DISORDER [None]
  - ABASIA [None]
  - OCULAR HYPERAEMIA [None]
